FAERS Safety Report 13739881 (Version 4)
Quarter: 2020Q1

REPORT INFORMATION
  Report Type: Spontaneous
  Country: NL (occurrence: NL)
  Receive Date: 20170711
  Receipt Date: 20200220
  Transmission Date: 20200409
  Serious: Yes (Other)
  Sender: FDA-Public Use
  Company Number: NL-AUROBINDO-AUR-APL-2017-37190

PATIENT
  Sex: Male

DRUGS (8)
  1. PREGABALIN. [Interacting]
     Active Substance: PREGABALIN
     Indication: NERVE INJURY
     Dosage: UNK UNK, DAILY
     Route: 065
  2. PARACETAMOL [Suspect]
     Active Substance: ACETAMINOPHEN
     Indication: LIMB INJURY
     Dosage: UNK
     Route: 065
  3. PREGABALIN. [Interacting]
     Active Substance: PREGABALIN
     Indication: LIMB INJURY
     Dosage: UNK UNK, TWO TIMES A DAY
     Route: 065
  4. AMITRIPTYLINE HCL TABLETS [Interacting]
     Active Substance: AMITRIPTYLINE
     Indication: LIMB INJURY
  5. PARACETAMOL [Interacting]
     Active Substance: ACETAMINOPHEN
     Indication: NERVE INJURY
  6. PREDNISONE TABLET [Interacting]
     Active Substance: PREDNISONE
     Indication: NERVE INJURY
     Dosage: UNK
     Route: 065
  7. AMITRIPTYLINE HCL TABLETS [Interacting]
     Active Substance: AMITRIPTYLINE
     Indication: NERVE INJURY
     Dosage: UNK
     Route: 065
  8. PREDNISONE TABLET [Interacting]
     Active Substance: PREDNISONE
     Indication: LIMB INJURY

REACTIONS (9)
  - Colour blindness [Not Recovered/Not Resolved]
  - Blindness transient [Unknown]
  - Eye disorder [Unknown]
  - Vision blurred [Unknown]
  - Drug interaction [Unknown]
  - Colour blindness acquired [Not Recovered/Not Resolved]
  - Astigmatism [Not Recovered/Not Resolved]
  - Eye irritation [Unknown]
  - Visual impairment [Not Recovered/Not Resolved]
